FAERS Safety Report 21534725 (Version 1)
Quarter: 2022Q4

REPORT INFORMATION
  Report Type: Spontaneous
  Country: US (occurrence: US)
  Receive Date: 20221101
  Receipt Date: 20221101
  Transmission Date: 20230113
  Serious: No
  Sender: FDA-Public Use
  Company Number: US-MIGRATION_PFIZER-2022BHV001734

PATIENT
  Age: 64 Year
  Weight: 106.69 kg

DRUGS (7)
  1. NURTEC ODT [Suspect]
     Active Substance: RIMEGEPANT SULFATE
     Indication: Migraine
     Dosage: 17-MAY-22 IS WHEN I GOT THE MEDICINE AND THEN I TRIED IT I THINK THE FOLLOWING WEEK, HE WOULD TAKE T
     Route: 065
  2. UNSPECIFIED INGREDIENT [Concomitant]
     Active Substance: UNSPECIFIED INGREDIENT
     Indication: Blood pressure management
     Route: 065
  3. UNSPECIFIED THYROID MEDICINE [Concomitant]
     Indication: Thyroid disorder
     Route: 065
  4. OMEPRAZOLE [Concomitant]
     Active Substance: OMEPRAZOLE
     Indication: Gastrooesophageal reflux disease
     Route: 065
  5. POTASSIUM [Concomitant]
     Active Substance: POTASSIUM
     Indication: Product used for unknown indication
     Route: 065
  6. HYDROCHLOROTHIAZIDE [Concomitant]
     Active Substance: HYDROCHLOROTHIAZIDE
     Indication: Product used for unknown indication
     Route: 065
  7. SUMATRIPTAN [Concomitant]
     Active Substance: SUMATRIPTAN
     Indication: Migraine
     Route: 065

REACTIONS (2)
  - Drug ineffective [Unknown]
  - Migraine [Not Recovered/Not Resolved]

NARRATIVE: CASE EVENT DATE: 20220501
